FAERS Safety Report 8556748-0 (Version None)
Quarter: 2012Q3

REPORT INFORMATION
  Report Type: 
  Country: None (occurrence: None)
  Receive Date: 20120801
  Receipt Date: 20120723
  Transmission Date: 20120928
  Serious: Yes (Death, Other)
  Sender: FDA-Public Use
  Company Number: SE-TEVA-349941ISR

PATIENT
  Age: 38 Year
  Sex: Female

DRUGS (1)
  1. OXAZEPAM [Suspect]
     Indication: TOXICITY TO VARIOUS AGENTS
     Route: 048

REACTIONS (4)
  - HYPOTHERMIA [None]
  - TOXICITY TO VARIOUS AGENTS [None]
  - ASPIRATION [None]
  - DEPRESSED LEVEL OF CONSCIOUSNESS [None]
